FAERS Safety Report 4435794-2 (Version None)
Quarter: 2004Q3

REPORT INFORMATION
  Report Type: 
  Country: None (occurrence: None)
  Receive Date: 20040726
  Receipt Date: 20040426
  Transmission Date: 20050211
  Serious: No
  Sender: FDA-Public Use
  Company Number: USA040465022

PATIENT
  Age: 79 Year
  Sex: Female
  Weight: 58 kg

DRUGS (1)
  1. FORTEO [Suspect]
     Indication: OSTEOPOROSIS
     Dates: start: 20031230

REACTIONS (3)
  - DYSPNOEA [None]
  - FREQUENT BOWEL MOVEMENTS [None]
  - SLEEP DISORDER [None]
